FAERS Safety Report 7710485-0 (Version None)
Quarter: 2011Q3

REPORT INFORMATION
  Report Type: 
  Country: None (occurrence: None)
  Receive Date: 20110825
  Receipt Date: 20101122
  Transmission Date: 20111222
  Serious: No
  Sender: FDA-Public Use
  Company Number: US-TYCO HEALTHCARE/MALLINCKRODT-T201002356

PATIENT
  Sex: Female

DRUGS (2)
  1. CONRAY [Suspect]
     Indication: ARTHROGRAM
     Dosage: UNK
     Dates: start: 20101101, end: 20101101
  2. OPTIMARK [Suspect]

REACTIONS (2)
  - HEADACHE [None]
  - NAUSEA [None]
